FAERS Safety Report 7404167-2 (Version None)
Quarter: 2011Q2

REPORT INFORMATION
  Report Type: 
  Country: None (occurrence: None)
  Receive Date: 20110408
  Receipt Date: 20110316
  Transmission Date: 20111010
  Serious: No
  Sender: FDA-Public Use
  Company Number: US-B.I. PHARMACEUTICALS,INC./RIDGEFIELD-2011-BP-08485BP

PATIENT
  Sex: Female

DRUGS (9)
  1. PRADAXA [Suspect]
     Indication: ATRIAL FIBRILLATION
     Dosage: 300 MG
     Route: 048
     Dates: start: 20110308
  2. CALCITRIOL [Concomitant]
     Indication: PROPHYLAXIS
  3. CARVEDILOL [Concomitant]
     Indication: ATRIAL FIBRILLATION
  4. TYLENOL W CODIENE [Concomitant]
     Indication: ARTHRITIS
  5. DIGOXIN [Concomitant]
     Indication: ATRIAL FIBRILLATION
  6. FUROSEMIDE [Concomitant]
     Indication: CARDIAC FAILURE
  7. VITAMIN D [Concomitant]
     Indication: PROPHYLAXIS
  8. ALLOPURINOL [Concomitant]
     Indication: GOUT
  9. SYNTHROID [Concomitant]
     Indication: HYPOTHYROIDISM

REACTIONS (4)
  - ABDOMINAL DISCOMFORT [None]
  - DYSPEPSIA [None]
  - MELAENA [None]
  - FLATULENCE [None]
